FAERS Safety Report 7156475-0 (Version None)
Quarter: 2010Q4

REPORT INFORMATION
  Report Type: 
  Country: None (occurrence: None)
  Receive Date: 20101214
  Receipt Date: 20100126
  Transmission Date: 20110411
  Serious: No
  Sender: FDA-Public Use
  Company Number: US-ASTRAZENECA-2009SE27692

PATIENT
  Sex: Male
  Weight: 72.1 kg

DRUGS (11)
  1. CRESTOR [Suspect]
     Route: 048
     Dates: start: 20090401, end: 20091114
  2. CRESTOR [Suspect]
     Route: 048
  3. SYNTHROID [Concomitant]
  4. ALBUTEROL [Concomitant]
  5. FINASTERIDE [Concomitant]
  6. FLOMAX [Concomitant]
  7. FLUSNISOLIDE [Concomitant]
  8. FORMOTEROL FUMARATE [Concomitant]
  9. LISINOPRIL [Concomitant]
  10. NIASPAN [Concomitant]
  11. PLAVX [Concomitant]

REACTIONS (3)
  - DISCOMFORT [None]
  - MUSCLE SPASMS [None]
  - URTICARIA [None]
